FAERS Safety Report 19630823 (Version 1)
Quarter: 2021Q3

REPORT INFORMATION
  Report Type: Spontaneous
  Country: US (occurrence: US)
  Receive Date: 20210729
  Receipt Date: 20210729
  Transmission Date: 20211014
  Serious: No
  Sender: FDA-Public Use
  Company Number: US-BAYER-2021-184184

PATIENT
  Sex: Female

DRUGS (2)
  1. STATIN [NYSTATIN] [Concomitant]
     Active Substance: NYSTATIN
     Dosage: 10 MG
  2. ESTRADIOL. [Suspect]
     Active Substance: ESTRADIOL
     Dosage: 0.05 MG WEEKLY
     Route: 062

REACTIONS (3)
  - Application site erythema [None]
  - Application site vesicles [None]
  - Application site rash [None]
